FAERS Safety Report 4879734-0 (Version None)
Quarter: 2006Q1

REPORT INFORMATION
  Report Type: 
  Country: None (occurrence: None)
  Receive Date: 20060113
  Receipt Date: 20060105
  Transmission Date: 20060701
  Serious: Yes (Hospitalization)
  Sender: FDA-Public Use
  Company Number: FR-AVENTIS-200610038FR

PATIENT
  Age: 71 Year
  Sex: Female
  Weight: 80 kg

DRUGS (3)
  1. LANTUS [Suspect]
     Indication: DIABETES MELLITUS
     Route: 058
     Dates: start: 20041101
  2. NOVONORM [Concomitant]
     Indication: DIABETES MELLITUS
     Route: 048
  3. STAGID [Concomitant]
     Indication: DIABETES MELLITUS
     Route: 048

REACTIONS (1)
  - KETOACIDOSIS [None]
